FAERS Safety Report 11236498 (Version 1)
Quarter: 2015Q3

REPORT INFORMATION
  Report Type: Report from Study
  Country: MX (occurrence: MX)
  Receive Date: 20150702
  Receipt Date: 20150702
  Transmission Date: 20151125
  Serious: Yes (Life-Threatening, Other)
  Sender: FDA-Public Use
  Company Number: PHHY2015MX071944

PATIENT
  Age: 68 Year
  Sex: Female

DRUGS (5)
  1. SOY ISOFLAVONES [Concomitant]
     Active Substance: SOY ISOFLAVONES
     Indication: MENOPAUSE
     Dosage: 1 DF, QD
     Route: 065
  2. MESALAZINE [Concomitant]
     Active Substance: MESALAMINE
     Indication: DYSPEPSIA
     Dosage: 2 DF, QD
     Route: 065
  3. ULTIBRO BREEZHALER [Suspect]
     Active Substance: GLYCOPYRRONIUM\INDACATEROL
     Indication: CHRONIC OBSTRUCTIVE PULMONARY DISEASE
     Dosage: 50 UG, QD (START: 28 DAYS AGO)
     Route: 055
     Dates: end: 20150611
  4. ANAPROX [Concomitant]
     Active Substance: NAPROXEN SODIUM
     Indication: RHINITIS ALLERGIC
     Dosage: 1 DF, QD
     Route: 065
  5. MIFLONIDE [Suspect]
     Active Substance: BUDESONIDE
     Indication: CHRONIC OBSTRUCTIVE PULMONARY DISEASE
     Dosage: 400 MG, BID
     Route: 065

REACTIONS (9)
  - Decreased appetite [Recovered/Resolved]
  - Hyperhidrosis [Recovered/Resolved]
  - Asphyxia [Recovered/Resolved]
  - Peripheral swelling [Recovered/Resolved]
  - Obstructive airways disorder [Recovered/Resolved]
  - Nausea [Recovered/Resolved]
  - Urticaria [Recovered/Resolved]
  - Headache [Recovered/Resolved]
  - Pruritus [Recovered/Resolved]

NARRATIVE: CASE EVENT DATE: 20150611
